FAERS Safety Report 15124724 (Version 10)
Quarter: 2019Q3

REPORT INFORMATION
  Report Type: Report from Study
  Country: DE (occurrence: DE)
  Receive Date: 20180710
  Receipt Date: 20190827
  Transmission Date: 20191004
  Serious: No
  Sender: FDA-Public Use
  Company Number: DE-ROCHE-2151780

PATIENT
  Age: 53 Year
  Sex: Female

DRUGS (8)
  1. OCREVUS [Suspect]
     Active Substance: OCRELIZUMAB
     Route: 042
     Dates: start: 20190122
  2. OCREVUS [Suspect]
     Active Substance: OCRELIZUMAB
     Dosage: MAINTENANCE DOSE
     Route: 042
     Dates: start: 20190711
  3. OCREVUS [Suspect]
     Active Substance: OCRELIZUMAB
     Dosage: SECOND INFUSION
     Route: 042
     Dates: start: 20180704
  4. OMEGA-3 [DOCOSAHEXAENOIC ACID;EICOSAPENTAENOIC ACID] [Concomitant]
     Active Substance: DOCONEXENT\ICOSAPENT
     Route: 065
  5. CYSTINOL AKUT [Concomitant]
  6. VITAMIN D3 [Concomitant]
     Active Substance: CHOLECALCIFEROL
     Route: 065
  7. OCREVUS [Suspect]
     Active Substance: OCRELIZUMAB
     Indication: RELAPSING-REMITTING MULTIPLE SCLEROSIS
     Route: 042
     Dates: start: 20180620
  8. VITAMIN D3 [Concomitant]
     Active Substance: CHOLECALCIFEROL
     Route: 065

REACTIONS (14)
  - Hot flush [Recovered/Resolved]
  - Depressed mood [Recovered/Resolved]
  - Headache [Recovered/Resolved]
  - Dizziness [Recovered/Resolved]
  - Headache [Recovered/Resolved]
  - Diarrhoea [Recovered/Resolved]
  - Sneezing [Recovered/Resolved]
  - Neck pain [Recovered/Resolved]
  - Fatigue [Recovered/Resolved]
  - Back pain [Recovered/Resolved]
  - Oral herpes [Recovered/Resolved]
  - Dyspnoea [Recovered/Resolved]
  - Swelling [Recovered/Resolved]
  - Urinary tract infection [Recovered/Resolved]

NARRATIVE: CASE EVENT DATE: 20180620
